FAERS Safety Report 4274699-7 (Version None)
Quarter: 2004Q1

REPORT INFORMATION
  Report Type: 
  Country: None (occurrence: None)
  Receive Date: 20040120
  Receipt Date: 20040120
  Transmission Date: 20041129
  Serious: Yes (Other)
  Sender: FDA-Public Use
  Company Number: None

PATIENT

DRUGS (1)
  1. ACCUTANE [Suspect]
     Indication: ACNE

REACTIONS (2)
  - HYPERTRIGLYCERIDAEMIA [None]
  - PHARMACEUTICAL PRODUCT COMPLAINT [None]
